FAERS Safety Report 9603364 (Version 3)
Quarter: 2013Q4

REPORT INFORMATION
  Report Type: Report from Study
  Country: DE (occurrence: DE)
  Receive Date: 20131007
  Receipt Date: 20131118
  Transmission Date: 20140711
  Serious: Yes (Hospitalization)
  Sender: FDA-Public Use
  Company Number: DE-ROCHE-1284038

PATIENT
  Sex: Female

DRUGS (9)
  1. RITUXIMAB [Suspect]
     Indication: B-CELL LYMPHOMA
     Dosage: LAST DOSE PRIOR TO SAE:23/SEP/2013
     Route: 042
     Dates: start: 20130918
  2. CYCLOPHOSPHAMIDE [Suspect]
     Indication: B-CELL LYMPHOMA
     Dosage: DATE OF LAST DOSE PRIOR TO SAE:24/SEP/2013.
     Route: 042
     Dates: start: 20130924
  3. DOXORUBICINE [Suspect]
     Indication: B-CELL LYMPHOMA
     Dosage: DATE OF LAST DOSE PRIOR TO SAE:24/SEP/2013.
     Route: 042
     Dates: start: 20130924
  4. LIPOSOMAL VINCRISTINE [Suspect]
     Indication: B-CELL LYMPHOMA
     Dosage: DATE OF LAST DOSE PRIOR TO SAE:24/SEP/2013.
     Route: 042
     Dates: start: 20130924
  5. PREDNISONE [Suspect]
     Indication: B-CELL LYMPHOMA
     Dosage: DATE OF LAST DOSE PRIOR TO SAE:24/SEP/2013.
     Route: 048
  6. DIMETINDENMALEAT [Concomitant]
     Indication: PREMEDICATION
     Route: 042
     Dates: start: 20130918
  7. RANITIDIN [Concomitant]
     Indication: PREMEDICATION
     Route: 042
     Dates: start: 20130918
  8. PARACETAMOL [Concomitant]
     Indication: PREMEDICATION
     Route: 048
     Dates: start: 20130918
  9. PREDNISOLON [Concomitant]
     Indication: PREMEDICATION
     Route: 048
     Dates: start: 20130918

REACTIONS (1)
  - Dysphagia [Recovered/Resolved]
